FAERS Safety Report 9592522 (Version 1)
Quarter: 2013Q3

REPORT INFORMATION
  Report Type: Spontaneous
  Country: US (occurrence: None)
  Receive Date: 20130927
  Receipt Date: 20130927
  Transmission Date: 20140515
  Serious: No
  Sender: FDA-Public Use
  Company Number: CABO-13002876

PATIENT
  Age: 85 Year
  Sex: Male

DRUGS (10)
  1. COMETRIQ [Suspect]
     Indication: PROSTATE CANCER
     Route: 048
     Dates: start: 20130427, end: 20130617
  2. DEXAMETHASONE(DEXAMETHAZONE SODIUM SUCCINATE) [Concomitant]
  3. CALCIUM(CALCIUM CHLORIDE HEXAHYDRATE) [Concomitant]
  4. DENOSUMAB(DENOSUMAB) [Concomitant]
  5. GLUCOSAMINE + CHONDROITIN(CHONDROITIN SULFATE, GLUCOSAMINE) [Concomitant]
  6. MAGNESIUM HYDROXIDE(MAGNESIUM HYDROXIDE) [Concomitant]
  7. MULTIVITAMIN(VITAMIN NOS) [Concomitant]
  8. OMEPRAZOLE(OMEPRAZOLE) [Concomitant]
  9. OXYCODONE(OXYCODONE HYDROCHLORIDE) [Concomitant]
  10. TOBRAMYCIN AND DEXAMETHASONE(DEXAMETHASONE, TOBRAMYCN) [Concomitant]

REACTIONS (3)
  - Haematemesis [None]
  - Stomatitis [None]
  - Nausea [None]
